FAERS Safety Report 11108663 (Version 1)
Quarter: 2015Q2

REPORT INFORMATION
  Report Type: Report from Study
  Country: US (occurrence: US)
  Receive Date: 20150513
  Receipt Date: 20150513
  Transmission Date: 20150821
  Serious: Yes (Other)
  Sender: FDA-Public Use
  Company Number: US-ROCHE-1572440

PATIENT
  Sex: Female

DRUGS (4)
  1. TRASTUZUMAB [Suspect]
     Active Substance: TRASTUZUMAB
     Dosage: (ADMINISTERED OVER 30 MIN, EVERY 3 WEEKS)
     Route: 042
  2. PILARALISIB [Suspect]
     Active Substance: PILARALISIB
     Indication: HER-2 POSITIVE BREAST CANCER
     Dosage: ON DAY 1 OF 21-DAY CYCLES?ARM1 : PILARALISIB 200 MG [N = 6], 300 MG [N = 6] OR 400 MG [N = 9] ONCE D
     Route: 048
  3. PACLITAXEL. [Suspect]
     Active Substance: PACLITAXEL
     Indication: HER-2 POSITIVE BREAST CANCER
     Dosage: (ON DAY 1, 8 AND 15 OF 21-DAY CYCLES) AS 1 HOUR IV INFUSION
     Route: 042
  4. TRASTUZUMAB [Suspect]
     Active Substance: TRASTUZUMAB
     Indication: HER-2 POSITIVE BREAST CANCER
     Dosage: LOADING DOSE, (ADMINISTERED OVER 90 MIN)
     Route: 042

REACTIONS (13)
  - Neutropenia [Unknown]
  - Activated partial thromboplastin time prolonged [Unknown]
  - Rash erythematous [Unknown]
  - Pneumonitis [Unknown]
  - Leukopenia [Unknown]
  - Blood alkaline phosphatase increased [Unknown]
  - Decreased appetite [Unknown]
  - Lymphopenia [Unknown]
  - Neuropathy peripheral [Unknown]
  - Hyperglycaemia [Unknown]
  - Hypokalaemia [Unknown]
  - Diarrhoea [Unknown]
  - Anaemia [Unknown]
